FAERS Safety Report 4717724-9 (Version None)
Quarter: 2005Q3

REPORT INFORMATION
  Report Type: 
  Country: None (occurrence: None)
  Receive Date: 20050713
  Receipt Date: 20050427
  Transmission Date: 20060218
  Serious: Yes (Other)
  Sender: FDA-Public Use
  Company Number: HQWYE496103MAY05

PATIENT
  Age: 49 Year
  Sex: Male

DRUGS (7)
  1. ALAVERT [Suspect]
     Indication: HYPERSENSITIVITY
     Dosage: 1 TABLET ONCE, ORAL
     Route: 048
     Dates: start: 20050401, end: 20050401
  2. IMITREX [Concomitant]
  3. COMBIVIR (IPRATROPIUM BROMIDE/SALBUTAMOL SULFATE) [Concomitant]
  4. HYDROCODONE (HYDROCODONE) [Concomitant]
  5. DIAZEPAM [Concomitant]
  6. PREVACID [Concomitant]
  7. DILANTIN [Concomitant]

REACTIONS (4)
  - DYSPEPSIA [None]
  - MALAISE [None]
  - THROAT IRRITATION [None]
  - VOMITING [None]
